FAERS Safety Report 21605934 (Version 1)
Quarter: 2022Q4

REPORT INFORMATION
  Report Type: Spontaneous
  Country: US (occurrence: None)
  Receive Date: 20221116
  Receipt Date: 20221116
  Transmission Date: 20230113
  Serious: Yes (Death)
  Sender: FDA-Public Use
  Company Number: None

PATIENT

DRUGS (3)
  1. GAMMAGARD LIQUID [Suspect]
     Active Substance: HUMAN IMMUNOGLOBULIN G
     Indication: Product used for unknown indication
     Dosage: OTHER STRENGTH : 10GM/100ML;?OTHER QUANTITY : 10GM/100ML;?INFUSE 70 GRAMS (700 ML) INTRAVENOUSLY EVE
     Route: 042
     Dates: start: 20180227, end: 2022
  2. DIPHENHYDRAMINE [Concomitant]
     Active Substance: DIPHENHYDRAMINE
  3. METHYLPRED SOD SUCC SDV [Concomitant]

REACTIONS (1)
  - Death [None]
